FAERS Safety Report 6519697-5 (Version None)
Quarter: 2009Q4

REPORT INFORMATION
  Report Type: 
  Country: None (occurrence: None)
  Receive Date: 20091228
  Receipt Date: 20091216
  Transmission Date: 20100525
  Serious: Yes (Other)
  Sender: FDA-Public Use
  Company Number: JP-PFIZER INC-2009311867

PATIENT

DRUGS (1)
  1. VFEND [Suspect]
     Route: 048

REACTIONS (2)
  - HALLUCINATION [None]
  - SPEECH DISORDER [None]
